FAERS Safety Report 16810582 (Version 1)
Quarter: 2019Q3

REPORT INFORMATION
  Report Type: Spontaneous
  Country: US (occurrence: US)
  Receive Date: 20190916
  Receipt Date: 20190916
  Transmission Date: 20191005
  Serious: Yes (Other)
  Sender: FDA-Public Use
  Company Number: US-PENTEC HEALTH-2019PEN00052

PATIENT
  Age: 68 Year
  Sex: Female

DRUGS (1)
  1. VANCOMYCIN HYDROCHLORIDE. [Suspect]
     Active Substance: VANCOMYCIN HYDROCHLORIDE
     Indication: ANTIBIOTIC PROPHYLAXIS
     Dosage: 0.1 ML, ONCE (1 MG)

REACTIONS (2)
  - Retinal vascular occlusion [Recovered/Resolved]
  - Retinal vasculitis [Recovered/Resolved]
